FAERS Safety Report 9586522 (Version 1)
Quarter: 2013Q4

REPORT INFORMATION
  Report Type: Spontaneous
  Country: US (occurrence: US)
  Receive Date: 20131003
  Receipt Date: 20131003
  Transmission Date: 20140711
  Serious: Yes (Other)
  Sender: FDA-Public Use
  Company Number: US-AMGEN-USASP2013068231

PATIENT
  Age: 83 Year
  Sex: Female

DRUGS (19)
  1. PROLIA [Suspect]
     Indication: OSTEOPOROSIS
     Dosage: UNK
     Route: 065
     Dates: start: 201304
  2. MAGNESIUM [Concomitant]
  3. NAMENDA [Concomitant]
  4. PROPRANOLOL [Concomitant]
  5. ARICEPT [Concomitant]
  6. LEVOTHYROXINE [Concomitant]
  7. PRILOSEC                           /00661201/ [Concomitant]
  8. MULTIVITAMIN                       /00097801/ [Concomitant]
  9. FISH OIL [Concomitant]
  10. CENTRUM SILVER                     /02363801/ [Concomitant]
  11. VITAMIN E                          /00110501/ [Concomitant]
  12. SPIRONOLACTONE [Concomitant]
  13. BUTALBITAL [Concomitant]
  14. AMOXICILLIN [Concomitant]
     Dosage: UNK UNK, AS NECESSARY
  15. TRAMADOL [Concomitant]
  16. VALTREX [Concomitant]
  17. LUTEIN                             /01638501/ [Concomitant]
  18. NAPROXEN [Concomitant]
  19. CYTOMEL [Concomitant]

REACTIONS (9)
  - Breast cancer recurrent [Unknown]
  - Alopecia [Unknown]
  - Hot flush [Unknown]
  - Groin pain [Unknown]
  - Gait disturbance [Unknown]
  - Madarosis [Unknown]
  - Back pain [Unknown]
  - Insomnia [Unknown]
  - Constipation [Recovered/Resolved]
